FAERS Safety Report 9454439 (Version 3)
Quarter: 2014Q2

REPORT INFORMATION
  Report Type: Report from Study
  Country: US (occurrence: US)
  Receive Date: 20130812
  Receipt Date: 20140603
  Transmission Date: 20141212
  Serious: Yes (Other)
  Sender: FDA-Public Use
  Company Number: US-ROCHE-1256213

PATIENT
  Sex: 0

DRUGS (2)
  1. BEVACIZUMAB [Suspect]
     Indication: MALIGNANT MELANOMA
     Dosage: ON A 28 DAY CYCLE.
     Route: 042
  2. SORAFENIB [Suspect]
     Indication: MALIGNANT MELANOMA
     Dosage: DAYS 1-5 Q 7 DAYS
     Route: 048

REACTIONS (5)
  - Thrombocytopenia [Unknown]
  - Proteinuria [Unknown]
  - Hypertension [Unknown]
  - Palmar-plantar erythrodysaesthesia syndrome [Unknown]
  - Confusional state [Unknown]
